FAERS Safety Report 9386870 (Version 1)
Quarter: 2013Q3

REPORT INFORMATION
  Report Type: Spontaneous
  Country: GB (occurrence: None)
  Receive Date: 20130702
  Receipt Date: 20130702
  Transmission Date: 20140515
  Serious: Yes (Other)
  Sender: FDA-Public Use
  Company Number: AUR-APL-2013-05298

PATIENT
  Age: 33 Year
  Sex: Female
  Weight: 59 kg

DRUGS (3)
  1. FLUCONAZOLE (FLUCONAZOLE) [Suspect]
     Indication: VULVOVAGINAL CANDIDIASIS
     Route: 048
     Dates: start: 20130605, end: 20130605
  2. LOPERAMIDE (LOPERAMIDE) [Concomitant]
  3. MEBEVERINE (MEBEVERINE) [Concomitant]

REACTIONS (4)
  - Dizziness [None]
  - Feeling hot [None]
  - Tremor [None]
  - Pyrexia [None]
